FAERS Safety Report 13069850 (Version 3)
Quarter: 2017Q1

REPORT INFORMATION
  Report Type: Spontaneous
  Country: US (occurrence: US)
  Receive Date: 20161228
  Receipt Date: 20170302
  Transmission Date: 20170428
  Serious: Yes (Hospitalization, Other)
  Sender: FDA-Public Use
  Company Number: US-SAOL THERAPEUTICS-2016SAO01286

PATIENT
  Age: 59 Year
  Sex: Female

DRUGS (6)
  1. COMPOUNDED BACLOFEN [Suspect]
     Active Substance: BACLOFEN
     Indication: PAIN
     Dosage: UNK
     Route: 037
  2. CLONIDINE. [Suspect]
     Active Substance: CLONIDINE
     Route: 037
  3. BUPIVACAINE. [Suspect]
     Active Substance: BUPIVACAINE
     Route: 037
  4. COMPOUNDED BACLOFEN [Suspect]
     Active Substance: BACLOFEN
     Indication: BACK PAIN
  5. MORPHINE [Suspect]
     Active Substance: MORPHINE
     Route: 037
  6. KETAMINE [Suspect]
     Active Substance: KETAMINE
     Route: 037

REACTIONS (4)
  - Device battery issue [Unknown]
  - Off label use [Unknown]
  - Drug withdrawal syndrome [Unknown]
  - Sedation [Unknown]

NARRATIVE: CASE EVENT DATE: 20161218
